FAERS Safety Report 16813336 (Version 1)
Quarter: 2019Q3

REPORT INFORMATION
  Report Type: Report from Study
  Country: None (occurrence: BR)
  Receive Date: 20190916
  Receipt Date: 20190916
  Transmission Date: 20191005
  Serious: Yes (Other)
  Sender: FDA-Public Use
  Company Number: BR-ABBVIE-19K-020-2921303-00

PATIENT
  Age: 46 Year
  Sex: Female
  Weight: 48 kg

DRUGS (1)
  1. HUMIRA [Suspect]
     Active Substance: ADALIMUMAB
     Indication: RHEUMATOID ARTHRITIS
     Route: 058
     Dates: start: 20190307, end: 201906

REACTIONS (8)
  - Asthenia [Recovered/Resolved]
  - Post procedural complication [Unknown]
  - Vaginal haemorrhage [Recovered/Resolved]
  - Candida infection [Recovered/Resolved]
  - Uterine haemorrhage [Recovered/Resolved]
  - Fear of injection [Unknown]
  - Anaemia [Unknown]
  - Vaginal perforation [Recovered/Resolved]

NARRATIVE: CASE EVENT DATE: 2019
